FAERS Safety Report 10141887 (Version 1)
Quarter: 2014Q2

REPORT INFORMATION
  Report Type: Report from Study
  Country: US (occurrence: US)
  Receive Date: 20140429
  Receipt Date: 20140429
  Transmission Date: 20141212
  Serious: No
  Sender: FDA-Public Use
  Company Number: US-ABBVIE-13P-163-1076746-00

PATIENT
  Sex: Male

DRUGS (1)
  1. CREON [Suspect]
     Indication: UNEVALUABLE EVENT

REACTIONS (1)
  - Flatulence [Unknown]
